FAERS Safety Report 25945582 (Version 1)
Quarter: 2025Q4

REPORT INFORMATION
  Report Type: Spontaneous
  Country: EU (occurrence: EU)
  Receive Date: 20251021
  Receipt Date: 20251021
  Transmission Date: 20260118
  Serious: Yes (Hospitalization, Other)
  Sender: GILEAD
  Company Number: None

PATIENT
  Age: 52 Year
  Sex: Female
  Weight: 66.2 kg

DRUGS (1)
  1. YESCARTA [Suspect]
     Active Substance: AXICABTAGENE CILOLEUCEL
     Indication: B-cell lymphoma
     Dosage: 2 MILLION PER KILOGRAM, ONCE
     Route: 042
     Dates: start: 20240708, end: 20240708

REACTIONS (3)
  - Hyperpyrexia [Recovered/Resolved]
  - Cytokine release syndrome [Recovered/Resolved]
  - Erythema [Recovered/Resolved]

NARRATIVE: CASE EVENT DATE: 20240709
